FAERS Safety Report 24554436 (Version 3)
Quarter: 2024Q4

REPORT INFORMATION
  Report Type: Spontaneous
  Country: US (occurrence: US)
  Receive Date: 20241028
  Receipt Date: 20241108
  Transmission Date: 20250115
  Serious: Yes (Death, Life-Threatening, Hospitalization, Other)
  Sender: SANOFI AVENTIS
  Company Number: US-SA-2024SA307916

PATIENT
  Age: 71 Year
  Sex: Female

DRUGS (1)
  1. HYDROCORTISONE [Suspect]
     Active Substance: HYDROCORTISONE
     Indication: Adrenal insufficiency
     Dosage: UNK

REACTIONS (27)
  - Peritoneal tuberculosis [Fatal]
  - Asthenia [Fatal]
  - Abdominal pain [Fatal]
  - Cough [Fatal]
  - Pyrexia [Fatal]
  - Hypophagia [Fatal]
  - Leukocytosis [Fatal]
  - Ascites [Fatal]
  - Pleural effusion [Fatal]
  - Generalised oedema [Fatal]
  - Rales [Fatal]
  - Localised oedema [Fatal]
  - Tenderness [Fatal]
  - Oedema peripheral [Fatal]
  - Pulmonary oedema [Fatal]
  - Granuloma [Fatal]
  - Fat necrosis [Fatal]
  - Mycobacterial infection [Fatal]
  - Chills [Fatal]
  - Latent tuberculosis [Fatal]
  - Tuberculosis [Fatal]
  - Hypercapnia [Fatal]
  - Sepsis [Fatal]
  - Multiple organ dysfunction syndrome [Fatal]
  - Coronavirus pneumonia [Unknown]
  - Urinary tract infection [Unknown]
  - Urinary retention [Unknown]
